FAERS Safety Report 15076592 (Version 1)
Quarter: 2018Q3

REPORT INFORMATION
  Report Type: Spontaneous
  Country: CZ (occurrence: CZ)
  Receive Date: 20180627
  Receipt Date: 20180627
  Transmission Date: 20181010
  Serious: Yes (Hospitalization)
  Sender: FDA-Public Use
  Company Number: CZ-ACELLA PHARMACEUTICALS, LLC-2050062

PATIENT
  Age: 21 Year
  Sex: Male

DRUGS (4)
  1. TETRAHYDROCANNABINOL [Suspect]
     Active Substance: DRONABINOL
  2. BENZODIAZEPINE [Suspect]
     Active Substance: BENZODIAZEPINE
  3. BROMPHENIRAMINE MAL, PSEUDOEPHEDRINE HCL, AND DEXTROMETHORPHAN HBR [Suspect]
     Active Substance: BROMPHENIRAMINE MALEATE\DEXTROMETHORPHAN HYDROBROMIDE\PSEUDOEPHEDRINE HYDROCHLORIDE
     Indication: SUICIDE ATTEMPT
  4. OPIOID ANALGESICS [Suspect]
     Active Substance: UNSPECIFIED INGREDIENT

REACTIONS (6)
  - Restlessness [Unknown]
  - Visual impairment [Unknown]
  - Disorientation [Unknown]
  - Conjunctival hyperaemia [Unknown]
  - Mydriasis [Unknown]
  - Sinus tachycardia [Unknown]
